FAERS Safety Report 7305039-4 (Version None)
Quarter: 2011Q1

REPORT INFORMATION
  Report Type: 
  Country: None (occurrence: None)
  Receive Date: 20110222
  Receipt Date: 20110211
  Transmission Date: 20110831
  Serious: Yes (Other)
  Sender: FDA-Public Use
  Company Number: US-CELGENEUS-163-20785-11021601

PATIENT
  Sex: Male

DRUGS (3)
  1. THALOMID [Suspect]
     Route: 048
     Dates: start: 20101001
  2. THALOMID [Suspect]
     Dosage: 200-400MG
     Route: 048
     Dates: start: 20100601
  3. THALOMID [Suspect]
     Route: 048
     Dates: start: 20090904

REACTIONS (1)
  - PREGNANCY OF PARTNER [None]
